FAERS Safety Report 15358275 (Version 1)
Quarter: 2018Q3

REPORT INFORMATION
  Report Type: Spontaneous
  Country: US (occurrence: US)
  Receive Date: 20180906
  Receipt Date: 20180906
  Transmission Date: 20181010
  Serious: No
  Sender: FDA-Public Use
  Company Number: US-PERRIGO-17US027304

PATIENT
  Age: 39 Year
  Sex: Female
  Weight: 97.51 kg

DRUGS (3)
  1. EVAMIST [Suspect]
     Active Substance: ESTRADIOL
     Indication: HORMONE REPLACEMENT THERAPY
     Dosage: 4.59 MG, QD
     Route: 062
     Dates: start: 20170719
  2. CITALOPRAM [Concomitant]
     Active Substance: CITALOPRAM HYDROBROMIDE
     Indication: DEPRESSION
     Dosage: UNK
     Route: 048
  3. FLAGYL [Concomitant]
     Active Substance: METRONIDAZOLE\METRONIDAZOLE HYDROCHLORIDE
     Indication: DIVERTICULITIS
     Dosage: UNK
     Route: 048
     Dates: start: 20170920, end: 20170930

REACTIONS (1)
  - Application site discolouration [Recovered/Resolved]

NARRATIVE: CASE EVENT DATE: 20171001
